FAERS Safety Report 16837930 (Version 1)
Quarter: 2019Q3

REPORT INFORMATION
  Report Type: Spontaneous
  Country: US (occurrence: US)
  Receive Date: 20190923
  Receipt Date: 20190923
  Transmission Date: 20191005
  Serious: No
  Sender: FDA-Public Use
  Company Number: US-BIOGEN-2019BI00766432

PATIENT
  Sex: Female

DRUGS (2)
  1. TYSABRI [Suspect]
     Active Substance: NATALIZUMAB
     Route: 065
     Dates: start: 20101209
  2. TYSABRI [Suspect]
     Active Substance: NATALIZUMAB
     Indication: MULTIPLE SCLEROSIS
     Route: 065
     Dates: start: 20081002, end: 20090409

REACTIONS (8)
  - Herpes zoster [Unknown]
  - Feeding disorder [Unknown]
  - Pyrexia [Unknown]
  - Urinary tract infection [Unknown]
  - Tooth loss [Unknown]
  - Infection [Unknown]
  - Memory impairment [Unknown]
  - Dysphonia [Unknown]
